FAERS Safety Report 7052780-7 (Version None)
Quarter: 2010Q4

REPORT INFORMATION
  Report Type: 
  Country: None (occurrence: None)
  Receive Date: 20101014
  Receipt Date: 20090723
  Transmission Date: 20110411
  Serious: Yes (Hospitalization, Disabling)
  Sender: FDA-Public Use
  Company Number: 2009-193753-NL

PATIENT
  Age: 32 Year
  Sex: Female
  Weight: 63.5 kg

DRUGS (2)
  1. NUVARING [Suspect]
     Indication: CONTRACEPTION
     Dosage: 1 DF;QM
     Dates: start: 20030201, end: 20030501
  2. WELCHOL [Concomitant]

REACTIONS (58)
  - ANKLE FRACTURE [None]
  - ANXIETY [None]
  - ASTHENIA [None]
  - BACK PAIN [None]
  - BLOOD URINE PRESENT [None]
  - BONE GRAFT [None]
  - CELLULITIS [None]
  - CHEST PAIN [None]
  - COLLATERAL CIRCULATION [None]
  - COLONIC POLYP [None]
  - CONFUSIONAL STATE [None]
  - DEEP VEIN THROMBOSIS [None]
  - DEHYDRATION [None]
  - DIARRHOEA [None]
  - DISORIENTATION [None]
  - DIZZINESS [None]
  - DRUG EXPOSURE BEFORE PREGNANCY [None]
  - DYSSTASIA [None]
  - ECCHYMOSIS [None]
  - EMOTIONAL DISORDER [None]
  - EPISTAXIS [None]
  - FALL [None]
  - FEELING HOT [None]
  - FRACTURE NONUNION [None]
  - GASTROENTERITIS NOROVIRUS [None]
  - GASTROINTESTINAL HAEMORRHAGE [None]
  - HAEMORRHAGE INTRACRANIAL [None]
  - HAEMORRHAGIC DIATHESIS [None]
  - HALLUCINATION [None]
  - HEAD INJURY [None]
  - HEADACHE [None]
  - HYPERCOAGULATION [None]
  - ILIAC VEIN OCCLUSION [None]
  - IMPAIRED DRIVING ABILITY [None]
  - INTERNATIONAL NORMALISED RATIO DECREASED [None]
  - INTERNATIONAL NORMALISED RATIO INCREASED [None]
  - INTESTINAL OBSTRUCTION [None]
  - JOINT INJURY [None]
  - LEUKOCYTOSIS [None]
  - MAY-THURNER SYNDROME [None]
  - MEDICAL DEVICE COMPLICATION [None]
  - MENORRHAGIA [None]
  - MIGRAINE [None]
  - NAUSEA [None]
  - OSTEOMYELITIS [None]
  - PHLEBITIS [None]
  - PLATELET COUNT INCREASED [None]
  - PLEURITIC PAIN [None]
  - POST THROMBOTIC SYNDROME [None]
  - PREGNANCY [None]
  - PROCEDURAL PAIN [None]
  - PULMONARY EMBOLISM [None]
  - RECTAL HAEMORRHAGE [None]
  - ROAD TRAFFIC ACCIDENT [None]
  - THERAPEUTIC AGENT TOXICITY [None]
  - THROMBOPHLEBITIS SUPERFICIAL [None]
  - TREATMENT NONCOMPLIANCE [None]
  - URINARY TRACT INFECTION [None]
